FAERS Safety Report 11629523 (Version 2)
Quarter: 2016Q1

REPORT INFORMATION
  Report Type: Spontaneous
  Country: US (occurrence: US)
  Receive Date: 20151014
  Receipt Date: 20160122
  Transmission Date: 20160525
  Serious: Yes (Hospitalization)
  Sender: FDA-Public Use
  Company Number: US-BAYER-2015-441855

PATIENT
  Age: 25 Year
  Sex: Female
  Weight: 68.27 kg

DRUGS (3)
  1. ZOFRAN [Concomitant]
     Active Substance: ONDANSETRON HYDROCHLORIDE
     Indication: NAUSEA
     Dosage: UNK
     Dates: start: 2007, end: 2013
  2. MIRENA [Suspect]
     Active Substance: LEVONORGESTREL
     Indication: CONTRACEPTION
     Dosage: 20 MCG/24HR, CONT
     Route: 015
     Dates: start: 20061110, end: 20070326
  3. SYNTHROID [Concomitant]
     Active Substance: LEVOTHYROXINE SODIUM
     Indication: HYPOTHYROIDISM
     Dosage: UNK
     Dates: start: 200310

REACTIONS (14)
  - Pain [None]
  - Abdominal distension [Not Recovered/Not Resolved]
  - Injury [None]
  - Depression [None]
  - Sexual dysfunction [None]
  - Device issue [None]
  - Device use error [None]
  - Uterine perforation [None]
  - Device failure [None]
  - Anxiety [None]
  - Menorrhagia [Not Recovered/Not Resolved]
  - Asthenia [None]
  - Emotional distress [None]
  - Stress [None]

NARRATIVE: CASE EVENT DATE: 20070326
